FAERS Safety Report 10011534 (Version 1)
Quarter: 2014Q1

REPORT INFORMATION
  Report Type: Spontaneous
  Country: US (occurrence: None)
  Receive Date: 20140313
  Receipt Date: 20140313
  Transmission Date: 20141002
  Serious: Yes (Other)
  Sender: FDA-Public Use
  Company Number: None

PATIENT
  Sex: Male
  Weight: 74.39 kg

DRUGS (2)
  1. ADDERALL XR 30MG [Suspect]
     Indication: ATTENTION DEFICIT/HYPERACTIVITY DISORDER
     Dosage: 1 TAB QD PO
     Route: 048
     Dates: start: 20111114, end: 20111216
  2. ADDERALL XR 30MG [Suspect]
     Indication: BIPOLAR DISORDER
     Dosage: 1 TAB QD PO
     Route: 048
     Dates: start: 20111114, end: 20111216

REACTIONS (1)
  - Treatment failure [None]
